FAERS Safety Report 5264023-5 (Version None)
Quarter: 2007Q1

REPORT INFORMATION
  Report Type: 
  Country: None (occurrence: None)
  Receive Date: 20061213
  Receipt Date: 20050617
  Transmission Date: 20070707
  Serious: Yes (Other)
  Sender: FDA-Public Use
  Company Number: 2004UW08500

PATIENT
  Age: 77 Year
  Sex: Male
  Weight: 87.543 kg

DRUGS (7)
  1. IRESSA [Suspect]
     Indication: NON-SMALL CELL LUNG CANCER
     Dosage: 250 MG PO
     Route: 048
     Dates: start: 20040329, end: 20050504
  2. LIPITOR [Concomitant]
  3. VIOXX [Concomitant]
  4. MYLANTA [Concomitant]
  5. PREVACID [Concomitant]
  6. ASPIRIN [Concomitant]
  7. VITAMINS [Concomitant]

REACTIONS (6)
  - ABDOMINAL DISCOMFORT [None]
  - APHTHOUS STOMATITIS [None]
  - DRUG EFFECT DECREASED [None]
  - DYSPNOEA [None]
  - GINGIVAL SWELLING [None]
  - OESOPHAGEAL PAIN [None]
